FAERS Safety Report 10399498 (Version 2)
Quarter: 2014Q3

REPORT INFORMATION
  Report Type: Spontaneous
  Country: US (occurrence: US)
  Receive Date: 20140821
  Receipt Date: 20140911
  Transmission Date: 20150326
  Serious: Yes (Other)
  Sender: FDA-Public Use
  Company Number: US-ALLERGAN-1417913US

PATIENT
  Age: 79 Year
  Sex: Female
  Weight: 63.49 kg

DRUGS (15)
  1. LOSARTAN POTASSIUM. [Concomitant]
     Active Substance: LOSARTAN POTASSIUM
     Indication: BLOOD PRESSURE INCREASED
     Dosage: 25 MG, UNK
  2. VITAMIN B12 [Concomitant]
     Active Substance: CYANOCOBALAMIN
     Dosage: 1000 ?G, UNK
  3. GARLIC. [Concomitant]
     Active Substance: GARLIC
     Dosage: 500 MG, UNK
  4. RESTASIS [Suspect]
     Active Substance: CYCLOSPORINE
     Indication: DRY EYE
     Dosage: UNK UNK, QD
     Route: 047
  5. VITAMIN C [Concomitant]
     Active Substance: ASCORBIC ACID
     Dosage: 1000 MG, UNK
  6. LIQUID JOINT JUICE [Concomitant]
     Dosage: 1 TABLESPOON DAILY
  7. FISH OIL [Concomitant]
     Active Substance: FISH OIL
     Dosage: 1200 MG, UNK
  8. VITAMIN E [Concomitant]
     Active Substance: .ALPHA.-TOCOPHEROL
     Dosage: 1000 IU, UNK
  9. VITAMIN D3 [Concomitant]
     Active Substance: CHOLECALCIFEROL
     Dosage: 2000 IU, UNK
  10. FLAX OIL [Concomitant]
     Dosage: 1000 MG, UNK
  11. LEVOTHYROXINE [Concomitant]
     Active Substance: LEVOTHYROXINE
     Indication: HYPOTHYROIDISM
     Dosage: 88 ?G, UNK
  12. MAGNESIUM W/ZINC [Concomitant]
     Dosage: 2 DF, UNK
  13. CALCIUM [Concomitant]
     Active Substance: CALCIUM
  14. ALENDRONATE [Concomitant]
     Active Substance: ALENDRONATE SODIUM
     Indication: BONE DISORDER
     Dosage: 70 MG, UNK
  15. SIMVASTATIN. [Concomitant]
     Active Substance: SIMVASTATIN
     Indication: BLOOD CHOLESTEROL INCREASED
     Dosage: 20 MG, UNK

REACTIONS (7)
  - Eye haemorrhage [Unknown]
  - Blindness unilateral [Unknown]
  - Optic nerve disorder [Unknown]
  - Pain in jaw [Unknown]
  - Visual acuity reduced [Unknown]
  - Eye swelling [Unknown]
  - Headache [Unknown]
